FAERS Safety Report 17773971 (Version 2)
Quarter: 2021Q2

REPORT INFORMATION
  Report Type: Spontaneous
  Country: IT (occurrence: IT)
  Receive Date: 20200513
  Receipt Date: 20210528
  Transmission Date: 20210716
  Serious: Yes (Other)
  Sender: FDA-Public Use
  Company Number: IT-SUN PHARMACEUTICAL INDUSTRIES LTD-2020RR-246369

PATIENT
  Age: 82 Year
  Sex: Male

DRUGS (5)
  1. PLAQUENIL [Suspect]
     Active Substance: HYDROXYCHLOROQUINE SULFATE
     Indication: CORONAVIRUS INFECTION
     Dosage: 600 MILLIGRAMS, DAILY
     Route: 048
     Dates: start: 20200406
  2. HALOPERIDOL. [Suspect]
     Active Substance: HALOPERIDOL
     Dosage: 5 GTT DROPS
     Route: 048
     Dates: start: 20200407
  3. TEICOPLANIN [Suspect]
     Active Substance: TEICOPLANIN
     Indication: CORONAVIRUS INFECTION
     Dosage: 400 MILLIGRAM, DAILY
     Route: 042
     Dates: start: 20200407
  4. HALOPERIDOL. [Suspect]
     Active Substance: HALOPERIDOL
     Indication: AGITATION
     Dosage: 5 GTT DROPS, DAILY
     Route: 048
     Dates: start: 20200407
  5. AZITHROMYCIN ANHYDROUS. [Suspect]
     Active Substance: AZITHROMYCIN ANHYDROUS
     Indication: CORONAVIRUS INFECTION
     Dosage: 500 MILLIGRAMS, DAILY
     Route: 048
     Dates: start: 20200406, end: 20200413

REACTIONS (2)
  - Electrocardiogram QT prolonged [Recovering/Resolving]
  - Off label use [Recovering/Resolving]

NARRATIVE: CASE EVENT DATE: 20200413
